FAERS Safety Report 18896465 (Version 1)
Quarter: 2021Q1

REPORT INFORMATION
  Report Type: Spontaneous
  Country: US (occurrence: US)
  Receive Date: 20210215
  Receipt Date: 20210215
  Transmission Date: 20210420
  Serious: Yes (Other)
  Sender: FDA-Public Use
  Company Number: US-INCYTE CORPORATION-2021IN001284

PATIENT

DRUGS (1)
  1. PEMAZYRE [Suspect]
     Active Substance: PEMIGATINIB
     Indication: CHOLANGIOCARCINOMA
     Dosage: UNK
     Route: 065

REACTIONS (2)
  - Hyperphosphataemia [Not Recovered/Not Resolved]
  - Ventricular tachycardia [Not Recovered/Not Resolved]

NARRATIVE: CASE EVENT DATE: 202102
